FAERS Safety Report 10256140 (Version 1)
Quarter: 2014Q2

REPORT INFORMATION
  Report Type: Spontaneous
  Country: US (occurrence: US)
  Receive Date: 20140624
  Receipt Date: 20140624
  Transmission Date: 20141212
  Serious: No
  Sender: FDA-Public Use
  Company Number: US-ZOGENIX, INC.-2012ZX000036

PATIENT
  Age: 33 Year
  Sex: Female
  Weight: 62.65 kg

DRUGS (5)
  1. SUMAVEL DOSEPRO [Suspect]
     Indication: MIGRAINE
  2. SUMAVEL DOSEPRO [Suspect]
     Dates: start: 20120118, end: 20120118
  3. SUMAVEL DOSEPRO [Suspect]
     Dates: start: 20120118, end: 20120118
  4. TOPAMAX [Concomitant]
     Indication: MIGRAINE
  5. BIRTH CONTROL PILL [Concomitant]
     Indication: ORAL CONTRACEPTION

REACTIONS (3)
  - Injection site erythema [Unknown]
  - Device malfunction [Recovered/Resolved]
  - Accidental exposure to product [Recovered/Resolved]
